FAERS Safety Report 5765003-3 (Version None)
Quarter: 2008Q2

REPORT INFORMATION
  Report Type: 
  Country: None (occurrence: None)
  Receive Date: 20080611
  Receipt Date: 20080528
  Transmission Date: 20081010
  Serious: Yes (Other)
  Sender: FDA-Public Use
  Company Number: PE-ELI_LILLY_AND_COMPANY-PE200805006104

PATIENT
  Age: 70 Year
  Sex: Male

DRUGS (1)
  1. INSULIN, HUMAN [Suspect]
     Dosage: 20 IU, UNKNOWN
     Route: 058
     Dates: start: 20030101

REACTIONS (1)
  - CEREBROVASCULAR ACCIDENT [None]
